FAERS Safety Report 7191533-6 (Version None)
Quarter: 2010Q4

REPORT INFORMATION
  Report Type: 
  Country: None (occurrence: None)
  Receive Date: 20101223
  Receipt Date: 20100715
  Transmission Date: 20110411
  Serious: Yes (Hospitalization, Other)
  Sender: FDA-Public Use
  Company Number: US-BAYER-201020519NA

PATIENT
  Sex: Female
  Weight: 78.182 kg

DRUGS (6)
  1. YAZ [Suspect]
     Indication: CONTRACEPTION
     Route: 048
     Dates: start: 20060801, end: 20090401
  2. YAZ [Suspect]
     Indication: PREMENSTRUAL SYNDROME
  3. YAZ [Suspect]
     Indication: ACNE
  4. YASMIN [Suspect]
     Indication: PREMENSTRUAL SYNDROME
     Route: 048
     Dates: start: 20060801, end: 20090401
  5. YASMIN [Suspect]
  6. YASMIN [Suspect]
     Indication: ACNE

REACTIONS (6)
  - ABDOMINAL PAIN [None]
  - ANXIETY [None]
  - BACK PAIN [None]
  - CHEST PAIN [None]
  - CHOLECYSTECTOMY [None]
  - NECK PAIN [None]
